FAERS Safety Report 6939618-0 (Version None)
Quarter: 2010Q3

REPORT INFORMATION
  Report Type: 
  Country: None (occurrence: None)
  Receive Date: 20100820
  Receipt Date: 20100810
  Transmission Date: 20110219
  Serious: Yes (Hospitalization)
  Sender: FDA-Public Use
  Company Number: 2010SP041387

PATIENT
  Age: 48 Year
  Sex: Female

DRUGS (2)
  1. PANCURONIUM BROMIDE [Suspect]
     Indication: STATUS ASTHMATICUS
     Dosage: ; IV
     Route: 042
  2. DEXAMETHASONE SODIUM PHOSPHATE [Suspect]
     Indication: STATUS ASTHMATICUS
     Dosage: ; IV
     Route: 042

REACTIONS (2)
  - BLOOD CREATINE PHOSPHOKINASE INCREASED [None]
  - MUSCULAR WEAKNESS [None]
